FAERS Safety Report 24197367 (Version 1)
Quarter: 2024Q3

REPORT INFORMATION
  Report Type: Spontaneous
  Country: US (occurrence: US)
  Receive Date: 20240810
  Receipt Date: 20240810
  Transmission Date: 20241016
  Serious: No
  Sender: GREER
  Company Number: US-GREER Laboratories, Inc.-2160255

PATIENT
  Age: 45 Year
  Sex: Male

DRUGS (1)
  1. PENICILLIUM CHRYSOGENUM VAR. CHRYSOGENUM [Suspect]
     Active Substance: PENICILLIUM CHRYSOGENUM VAR. CHRYSOGENUM
     Indication: Seasonal allergy
     Route: 058
     Dates: start: 20240229

REACTIONS (6)
  - Eye pain [Unknown]
  - Dacryostenosis acquired [Unknown]
  - Face oedema [Unknown]
  - Eye swelling [Unknown]
  - Abdominal discomfort [Unknown]
  - Eye pruritus [Unknown]

NARRATIVE: CASE EVENT DATE: 20240314
